FAERS Safety Report 9156742 (Version 1)
Quarter: 2013Q1

REPORT INFORMATION
  Report Type: Spontaneous
  Country: FR (occurrence: FR)
  Receive Date: 20130312
  Receipt Date: 20130312
  Transmission Date: 20140127
  Serious: Yes (Hospitalization, Other)
  Sender: FDA-Public Use
  Company Number: FR-ELI_LILLY_AND_COMPANY-FR201302010126

PATIENT
  Age: 67 Year
  Sex: Female

DRUGS (12)
  1. CYMBALTA [Suspect]
     Dosage: 60 MG, QD
     Route: 048
  2. XARELTO [Concomitant]
     Dosage: 20 MG, QD
     Dates: end: 20121224
  3. METFORMIN [Concomitant]
     Dosage: 850 UNK, TID
  4. LEVOTHYROX [Concomitant]
     Dosage: 175 UNITS NOT GIVEN, QD
  5. LANTUS [Concomitant]
     Dosage: 58 IU, EACH EVENING
  6. INSULINE [Concomitant]
     Dosage: 14 IU, QD
  7. TAHOR [Concomitant]
  8. FUROSEMIDE [Concomitant]
     Dosage: 80 MG, QD
  9. ATARAX [Concomitant]
     Dosage: 25 UNITS NOT GIVEN
  10. ALDACTONE [Concomitant]
     Dosage: 25 MG, QD
  11. BISOPROLOL [Concomitant]
     Dosage: 5 UNITS NOT GIVEN, QD
  12. INEXIUM [Concomitant]
     Dosage: 40 UNITS NOT KNOWN, DAILY

REACTIONS (6)
  - Fall [Recovering/Resolving]
  - Head injury [Recovering/Resolving]
  - Subarachnoid haemorrhage [Recovering/Resolving]
  - Brain contusion [Recovering/Resolving]
  - Subdural haematoma [Recovering/Resolving]
  - Facial bones fracture [Recovering/Resolving]
